FAERS Safety Report 7957354-9 (Version None)
Quarter: 2011Q4

REPORT INFORMATION
  Report Type: 
  Country: None (occurrence: None)
  Receive Date: 20111205
  Receipt Date: 20111124
  Transmission Date: 20120403
  Serious: Yes (Hospitalization, Other)
  Sender: FDA-Public Use
  Company Number: PHHY2011JP105178

PATIENT
  Age: 29 Year
  Sex: Female

DRUGS (5)
  1. METHYLDOPA [Suspect]
     Dosage: 1500 MG, UNK
  2. VALSARTAN [Suspect]
  3. METHYLDOPA [Suspect]
     Indication: ESSENTIAL HYPERTENSION
     Dosage: 375 MG, UNK
     Route: 048
  4. AMLODIPINE [Suspect]
     Indication: ESSENTIAL HYPERTENSION
  5. ADALAT [Suspect]
     Indication: ESSENTIAL HYPERTENSION
     Dosage: 40 MG, UNK
     Route: 048

REACTIONS (5)
  - POSTPARTUM HAEMORRHAGE [None]
  - UTERINE HYPOTONUS [None]
  - MATERNAL EXPOSURE DURING PREGNANCY [None]
  - BLOOD PRESSURE INCREASED [None]
  - DELIVERY [None]
